FAERS Safety Report 6743989-8 (Version None)
Quarter: 2010Q2

REPORT INFORMATION
  Report Type: 
  Country: None (occurrence: None)
  Receive Date: 20100527
  Receipt Date: 20100521
  Transmission Date: 20101027
  Serious: Yes (Other)
  Sender: FDA-Public Use
  Company Number: US-RB-009806-10

PATIENT
  Age: 41 Year
  Sex: Female

DRUGS (2)
  1. SUBUTEX [Suspect]
     Indication: DRUG USE FOR UNKNOWN INDICATION
     Dosage: UNKNOWN DOSING DETAILS
     Route: 065
  2. SUBOXONE [Suspect]
     Indication: DRUG USE FOR UNKNOWN INDICATION
     Dosage: UNKNOWN DOSING DETAILS, STATES SHE IS SELF WEANING PER MD INSTRUCTION
     Route: 065

REACTIONS (9)
  - ABDOMINAL PAIN UPPER [None]
  - BACK PAIN [None]
  - DYSPNOEA [None]
  - FATIGUE [None]
  - LETHARGY [None]
  - LIMB INJURY [None]
  - NAUSEA [None]
  - PAIN [None]
  - SUICIDAL IDEATION [None]
